FAERS Safety Report 12407227 (Version 11)
Quarter: 2020Q4

REPORT INFORMATION
  Report Type: Spontaneous
  Country: US (occurrence: US)
  Receive Date: 20160526
  Receipt Date: 20201207
  Transmission Date: 20210113
  Serious: Yes (Other)
  Sender: FDA-Public Use
  Company Number: US-PFIZER INC-2016057758

PATIENT
  Age: 48 Year
  Sex: Female
  Weight: 120 kg

DRUGS (24)
  1. LANTUS SOLOSTAR [Concomitant]
     Active Substance: INSULIN GLARGINE
     Dosage: 80 IU, DAILY
  2. LANTUS SOLOSTAR [Concomitant]
     Active Substance: INSULIN GLARGINE
     Dosage: 50 IU, 2X/DAY (INTO THE SKIN)
  3. ALBUTEROL. [Concomitant]
     Active Substance: ALBUTEROL
     Dosage: 90 UG, UNK (INHALER)
  4. ADVAIR DISKUS [Concomitant]
     Active Substance: FLUTICASONE PROPIONATE\SALMETEROL XINAFOATE
     Dosage: 1 DF, 2X/DAY (500-50 MCG/DOSE DISKUS INHALER)
  5. VALIUM [Concomitant]
     Active Substance: DIAZEPAM
     Indication: MUSCLE SPASMS
     Dosage: 5 MG, AS NEEDED (EVERY 6 HOURS )
     Route: 048
  6. VICODIN ES [Concomitant]
     Active Substance: ACETAMINOPHEN\HYDROCODONE BITARTRATE
     Dosage: UNK, [HYDROCODONE: 7.5 MG, ACETAMINOPHEN: 750MG]
  7. TRAMADOL. [Concomitant]
     Active Substance: TRAMADOL
     Indication: PAIN
     Dosage: 50 MG, 4X/DAY
  8. LANTUS [Concomitant]
     Active Substance: INSULIN GLARGINE
     Dosage: 50 IU, 2X/DAY
     Route: 058
  9. LYRICA [Suspect]
     Active Substance: PREGABALIN
     Indication: NEUROPATHY PERIPHERAL
     Dosage: 150 MG, 3X/DAY
     Route: 048
  10. VICODIN [Concomitant]
     Active Substance: ACETAMINOPHEN\HYDROCODONE BITARTRATE
     Dosage: UNK, 4X/DAY (HYDROCODONE BITARTRATE 7.5MG/PARACETAMOL 325MG; 1-2 TAB EVERY 6 HOURS AS NEEDED)
  11. METANX [Concomitant]
     Active Substance: LEVOMEFOLATE CALCIUM\METHYLCOBALAMIN\PYRIDOXAL PHOSPHATE ANHYDROUS
     Dosage: 1 DF, 2X/DAY
  12. GABAPENTIN. [Concomitant]
     Active Substance: GABAPENTIN
     Indication: NEUROPATHY PERIPHERAL
     Dosage: 800 MG, 3X/DAY
     Route: 048
  13. LYRICA [Suspect]
     Active Substance: PREGABALIN
     Indication: PARAESTHESIA
     Dosage: 200 MG, 3X/DAY (STRENGTH: 200 MG)
  14. ANAPROX DS [Concomitant]
     Active Substance: NAPROXEN SODIUM
     Indication: PAIN
     Dosage: 550 MG, AS NEEDED (2 TIMES DAILY, TAKE WITH FOOD)
     Route: 048
  15. LYRICA [Suspect]
     Active Substance: PREGABALIN
     Dosage: 300 MG, 2X/DAY (STRENGTH: 300 MG)
     Route: 048
  16. METFORMIN ER [Concomitant]
     Active Substance: METFORMIN HYDROCHLORIDE
     Dosage: 1000 MG, 2X/DAY
  17. SINGULAIR [Concomitant]
     Active Substance: MONTELUKAST SODIUM
     Dosage: 10 MG, 1X/DAY
  18. ZANAFLEX [Concomitant]
     Active Substance: TIZANIDINE HYDROCHLORIDE
     Dosage: 4 MG, 4X/DAY (EVERY 6 HOURS AS NEEDED)
  19. TRAMADOL. [Concomitant]
     Active Substance: TRAMADOL
     Dosage: 100 MG, 3X/DAY
     Route: 048
  20. MICRONOR [Concomitant]
     Active Substance: NORETHINDRONE
     Dosage: 0.35 MG, DAILY
     Route: 048
  21. GLUCOPHAGE XR [Concomitant]
     Active Substance: METFORMIN HYDROCHLORIDE
     Dosage: 500 MG, 2X/DAY
     Route: 048
  22. ZANAFLEX [Concomitant]
     Active Substance: TIZANIDINE HYDROCHLORIDE
     Dosage: 4 MG, UNK
  23. VICTOZA [Concomitant]
     Active Substance: LIRAGLUTIDE
     Dosage: UNK, 1X/DAY (18MG/3ML INJECTION, PEN INJECT 1.6 ONCE DAILY)
  24. ALBUTEROL. [Concomitant]
     Active Substance: ALBUTEROL
     Dosage: 2 DF, AS NEEDED

REACTIONS (5)
  - Drug ineffective [Unknown]
  - Arthropathy [Unknown]
  - Asthma [Unknown]
  - Localised infection [Unknown]
  - Back disorder [Unknown]

NARRATIVE: CASE EVENT DATE: 201601
